FAERS Safety Report 6692121-8 (Version None)
Quarter: 2010Q2

REPORT INFORMATION
  Report Type: 
  Country: None (occurrence: None)
  Receive Date: 20100422
  Receipt Date: 20090831
  Transmission Date: 20101027
  Serious: No
  Sender: FDA-Public Use
  Company Number: US-ASTRAZENECA-2009SE10982

PATIENT
  Age: 58 Year
  Sex: Female
  Weight: 86.6 kg

DRUGS (3)
  1. METOPROLOL SUCCINATE [Suspect]
     Indication: HYPERTENSION
     Dates: start: 19990101
  2. CLIMARA [Concomitant]
  3. LISINOPRIL [Concomitant]

REACTIONS (6)
  - GOITRE [None]
  - OEDEMA PERIPHERAL [None]
  - RASH [None]
  - SWELLING FACE [None]
  - THYROID FUNCTION TEST NORMAL [None]
  - URTICARIA [None]
